FAERS Safety Report 11318067 (Version 2)
Quarter: 2016Q1

REPORT INFORMATION
  Report Type: Report from Study
  Country: JP (occurrence: JP)
  Receive Date: 20150728
  Receipt Date: 20160308
  Transmission Date: 20160525
  Serious: Yes (Hospitalization)
  Sender: FDA-Public Use
  Company Number: JP-EISAI MEDICAL RESEARCH-EC-2015-008822

PATIENT
  Age: 68 Year
  Sex: Female
  Weight: 40 kg

DRUGS (11)
  1. CILOSTAZOL. [Concomitant]
     Active Substance: CILOSTAZOL
  2. NAIXAN [Concomitant]
     Active Substance: NAPROXEN SODIUM
  3. TENELIA [Concomitant]
     Active Substance: TENELIGLIPTIN
  4. CEFTRIAXONE SODIUM HYDRATE [Concomitant]
     Active Substance: CEFTRIAXONE SODIUM
  5. LENVIMA [Suspect]
     Active Substance: LENVATINIB
     Route: 048
     Dates: start: 20150717, end: 20150720
  6. OLMETEC [Concomitant]
     Active Substance: OLMESARTAN MEDOXOMIL
  7. AMLODIPINE [Concomitant]
     Active Substance: AMLODIPINE BESYLATE
  8. PARIET [Concomitant]
     Active Substance: RABEPRAZOLE SODIUM
  9. LENVIMA [Suspect]
     Active Substance: LENVATINIB
     Indication: ANAPLASTIC THYROID CANCER
     Route: 048
     Dates: start: 20150704, end: 20150713
  10. LEVOTHYROXINE SODIUM HYDRATE [Concomitant]
  11. DENOTAS [Concomitant]
     Active Substance: CALCIUM CARBONATE\CHOLECALCIFEROL\MAGNESIUM CARBONATE

REACTIONS (3)
  - Nausea [Recovered/Resolved]
  - Delirium [Not Recovered/Not Resolved]
  - Decreased appetite [Recovered/Resolved]

NARRATIVE: CASE EVENT DATE: 20150706
